FAERS Safety Report 23615445 (Version 1)
Quarter: 2024Q1

REPORT INFORMATION
  Report Type: Spontaneous
  Country: CN (occurrence: CN)
  Receive Date: 20240311
  Receipt Date: 20240311
  Transmission Date: 20240409
  Serious: Yes (Hospitalization)
  Sender: FDA-Public Use
  Company Number: CN-Merck Healthcare KGaA-2024005366

PATIENT
  Age: 37 Year
  Sex: Female

DRUGS (2)
  1. EUTHYROX [Suspect]
     Active Substance: LEVOTHYROXINE SODIUM
     Indication: Hypothyroidism
     Dosage: PRODUCTION DATE: 29-MAR-2023
     Route: 048
     Dates: start: 202311
  2. PRUNELLA VULGARIS [Concomitant]
     Indication: Product used for unknown indication
     Dosage: 2 VIALS PER DAY
     Route: 048

REACTIONS (7)
  - Blood thyroid stimulating hormone increased [Recovered/Resolved]
  - Thyroxine decreased [Recovered/Resolved]
  - Tri-iodothyronine decreased [Recovered/Resolved]
  - Depressed mood [Unknown]
  - Decreased appetite [Unknown]
  - Suspected product quality issue [Unknown]
  - Suspected counterfeit product [Unknown]

NARRATIVE: CASE EVENT DATE: 20240121
